FAERS Safety Report 5233960-X (Version None)
Quarter: 2007Q1

REPORT INFORMATION
  Report Type: 
  Country: None (occurrence: None)
  Receive Date: 20070208
  Receipt Date: 20070125
  Transmission Date: 20070707
  Serious: Yes (Hospitalization, Other)
  Sender: FDA-Public Use
  Company Number: US-PFIZER INC-2005049581

PATIENT
  Sex: Male
  Weight: 70.8 kg

DRUGS (3)
  1. BEXTRA [Suspect]
     Indication: NECK PAIN
  2. BEXTRA [Suspect]
     Indication: LOCAL SWELLING
  3. CELEBREX [Suspect]
     Indication: PAIN

REACTIONS (2)
  - CEREBROVASCULAR ACCIDENT [None]
  - THROMBOSIS [None]
